FAERS Safety Report 17565740 (Version 1)
Quarter: 2020Q1

REPORT INFORMATION
  Report Type: Spontaneous
  Country: SG (occurrence: SG)
  Receive Date: 20200320
  Receipt Date: 20200320
  Transmission Date: 20200409
  Serious: Yes (Hospitalization, Other)
  Sender: FDA-Public Use
  Company Number: SG-ASTELLAS-2019US033831

PATIENT
  Age: 35 Year
  Sex: Female

DRUGS (3)
  1. GILTERITINIB FUMARATE [Suspect]
     Active Substance: GILTERITINIB
     Indication: ACUTE MYELOID LEUKAEMIA
     Dosage: UNK UNK, UNKNOWN FREQ.
     Route: 065
     Dates: start: 2018, end: 2018
  2. GILTERITINIB FUMARATE [Suspect]
     Active Substance: GILTERITINIB
     Dosage: UNK, UNKNOWN FREQ.
     Route: 065
  3. GILTERITINIB FUMARATE [Suspect]
     Active Substance: GILTERITINIB
     Dosage: UNK, UNKNOWN FREQ.
     Route: 065
     Dates: start: 2018

REACTIONS (4)
  - Acute febrile neutrophilic dermatosis [Recovered/Resolved]
  - Differentiation syndrome [Recovering/Resolving]
  - Acute myeloid leukaemia recurrent [Unknown]
  - Transaminases increased [Unknown]

NARRATIVE: CASE EVENT DATE: 20181024
